FAERS Safety Report 5971725-1 (Version None)
Quarter: 2008Q4

REPORT INFORMATION
  Report Type: 
  Country: None (occurrence: None)
  Receive Date: 20081201
  Receipt Date: 20081121
  Transmission Date: 20090506
  Serious: Yes (Hospitalization)
  Sender: FDA-Public Use
  Company Number: PT-JNJFOC-20081102007

PATIENT
  Sex: Male

DRUGS (14)
  1. RISPERDAL CONSTA [Suspect]
     Route: 030
     Dates: start: 20071115
  2. RISPERDAL CONSTA [Suspect]
     Route: 030
     Dates: start: 20071115
  3. RISPERDAL CONSTA [Suspect]
     Route: 030
     Dates: start: 20071115
  4. RISPERDAL CONSTA [Suspect]
     Route: 030
     Dates: start: 20071115
  5. RISPERDAL CONSTA [Suspect]
     Indication: SCHIZOPHRENIA
     Route: 030
     Dates: start: 20071115
  6. RISPERDAL [Suspect]
     Route: 065
     Dates: end: 20080817
  7. RISPERDAL [Suspect]
     Indication: DRUG USE FOR UNKNOWN INDICATION
     Route: 065
     Dates: end: 20080817
  8. HALDOL [Suspect]
     Indication: DRUG USE FOR UNKNOWN INDICATION
     Route: 065
     Dates: end: 20080817
  9. ZOLEPTIL [Suspect]
     Indication: DRUG USE FOR UNKNOWN INDICATION
     Route: 065
     Dates: start: 20080715, end: 20080817
  10. LORENIN [Suspect]
     Route: 065
     Dates: end: 20080817
  11. LORENIN [Suspect]
     Route: 065
     Dates: end: 20080817
  12. LORENIN [Suspect]
     Indication: DRUG USE FOR UNKNOWN INDICATION
     Route: 065
     Dates: end: 20080817
  13. ZIPRASIDONE HYDROCHLORIDE [Concomitant]
     Route: 065
  14. DIAZEPAM [Concomitant]
     Route: 065

REACTIONS (4)
  - AGGRESSION [None]
  - CONVULSION [None]
  - HALLUCINATION [None]
  - OVERDOSE [None]
